FAERS Safety Report 10136872 (Version 1)
Quarter: 2014Q2

REPORT INFORMATION
  Report Type: Spontaneous
  Country: US (occurrence: None)
  Receive Date: 20140428
  Receipt Date: 20140428
  Transmission Date: 20141212
  Serious: Yes (Hospitalization, Disabling)
  Sender: FDA-Public Use
  Company Number: None

PATIENT
  Age: 25 Year
  Sex: Male
  Weight: 120.66 kg

DRUGS (5)
  1. HALOPERIDOL [Suspect]
     Indication: BIPOLAR DISORDER
     Route: 048
     Dates: start: 201102
  2. BENADRYL [Suspect]
  3. COUGH MEDICAN [Concomitant]
  4. SLEEP MEDICATION PILLES [Concomitant]
  5. REMEDIES STOMACH RELIVES [Concomitant]

REACTIONS (2)
  - Family stress [None]
  - Unevaluable event [None]
